FAERS Safety Report 9518515 (Version 1)
Quarter: 2013Q3

REPORT INFORMATION
  Report Type: Spontaneous
  Country: US (occurrence: None)
  Receive Date: 20130910
  Receipt Date: 20130910
  Transmission Date: 20140515
  Serious: Yes (Hospitalization)
  Sender: FDA-Public Use
  Company Number: None

PATIENT
  Age: 76 Year
  Sex: Male

DRUGS (2)
  1. ZYTIGA [Suspect]
     Route: 048
     Dates: start: 20121213
  2. ZYTIGA [Suspect]
     Route: 048
     Dates: start: 20121213

REACTIONS (2)
  - Dehydration [None]
  - Hypokalaemia [None]
